FAERS Safety Report 4806120-1 (Version None)
Quarter: 2005Q4

REPORT INFORMATION
  Report Type: 
  Country: None (occurrence: None)
  Receive Date: 20051021
  Receipt Date: 20051006
  Transmission Date: 20060501
  Serious: Yes (Other)
  Sender: FDA-Public Use
  Company Number: SK-ROCHE-420217

PATIENT
  Age: 56 Year
  Sex: Female

DRUGS (5)
  1. ROACCUTANE [Suspect]
     Indication: ROSACEA
     Route: 065
  2. ROACCUTANE [Suspect]
     Route: 065
  3. UNSPECIFIED DRUG [Concomitant]
     Indication: ROSACEA
     Dosage: DRUG NAME WAS REPORTED AS ROSEX
     Route: 050
  4. UNSPECIFIED DRUG [Concomitant]
     Dosage: DRUG REPORTED AS ENTIZOL
  5. AZATRIL [Concomitant]
     Indication: ROSACEA

REACTIONS (4)
  - DRY SKIN [None]
  - ERYTHEMA OF EYELID [None]
  - EYELID OEDEMA [None]
  - HYPERSENSITIVITY [None]
